FAERS Safety Report 14999738 (Version 1)
Quarter: 2018Q2

REPORT INFORMATION
  Report Type: Spontaneous
  Country: US (occurrence: US)
  Receive Date: 20180523
  Receipt Date: 20180523
  Transmission Date: 20180711
  Serious: No
  Sender: FDA-Public Use
  Company Number: None

PATIENT
  Age: 65 Year
  Sex: Female

DRUGS (3)
  1. COMPOUNDED T-3 [Concomitant]
  2. QUININE SULFATE. [Suspect]
     Active Substance: QUININE SULFATE
     Indication: INFECTION PARASITIC
     Dosage: ?          QUANTITY:1 DF DOSAGE FORM;?
     Route: 048
  3. SUPPLEMENTS [Concomitant]
     Active Substance: UNSPECIFIED INGREDIENT

REACTIONS (3)
  - Product packaging quantity issue [None]
  - Product physical issue [None]
  - Product substitution issue [None]

NARRATIVE: CASE EVENT DATE: 20180407
